FAERS Safety Report 7731825-2 (Version None)
Quarter: 2011Q3

REPORT INFORMATION
  Report Type: 
  Country: None (occurrence: None)
  Receive Date: 20110906
  Receipt Date: 20110707
  Transmission Date: 20111222
  Serious: No
  Sender: FDA-Public Use
  Company Number: US-AMGEN-USASP2011034485

PATIENT
  Sex: Female

DRUGS (5)
  1. VITAMIN D                          /00318501/ [Concomitant]
  2. PROLIA [Suspect]
     Indication: OSTEOPOROSIS POSTMENOPAUSAL
     Dosage: UNK UNK, Q6MO
     Dates: start: 20110330
  3. FENTANYL-100 [Concomitant]
  4. VITAMIN C                          /00008001/ [Concomitant]
  5. METOPROLOL [Concomitant]

REACTIONS (4)
  - PAIN [None]
  - MYALGIA [None]
  - TENDONITIS [None]
  - MUSCULOSKELETAL PAIN [None]
